FAERS Safety Report 9025943 (Version 1)
Quarter: 2013Q1

REPORT INFORMATION
  Report Type: Spontaneous
  Country: US (occurrence: None)
  Receive Date: 20130104
  Receipt Date: 20130104
  Transmission Date: 20140127
  Serious: Yes (Hospitalization)
  Sender: FDA-Public Use
  Company Number: 2012-1158

PATIENT
  Age: 65 Year
  Sex: Male

DRUGS (3)
  1. KYPROLIS (CARFILZOMIB) [Suspect]
     Indication: PLASMA CELL MYELOMA
     Route: 042
     Dates: start: 20120924, end: 20121102
  2. VALTREX [Concomitant]
  3. DEXAMETHASONE [Concomitant]

REACTIONS (6)
  - Heart rate irregular [None]
  - Dyspnoea [None]
  - Atrial fibrillation [None]
  - Heart rate increased [None]
  - Heart rate decreased [None]
  - Laboratory test abnormal [None]
